FAERS Safety Report 5955308-5 (Version None)
Quarter: 2008Q4

REPORT INFORMATION
  Report Type: 
  Country: None (occurrence: None)
  Receive Date: 20081117
  Receipt Date: 20081103
  Transmission Date: 20090506
  Serious: Yes (Hospitalization)
  Sender: FDA-Public Use
  Company Number: US-MERCK-0810USA01819

PATIENT
  Sex: Male

DRUGS (2)
  1. INVANZ [Suspect]
     Indication: PANCREATIC ABSCESS
     Route: 042
     Dates: start: 20081006, end: 20081006
  2. INVANZ [Suspect]
     Indication: INFECTION
     Route: 042
     Dates: start: 20081006, end: 20081006

REACTIONS (1)
  - INJECTION SITE RASH [None]
